FAERS Safety Report 16584134 (Version 1)
Quarter: 2019Q3

REPORT INFORMATION
  Report Type: Spontaneous
  Country: FR (occurrence: FR)
  Receive Date: 20190717
  Receipt Date: 20190717
  Transmission Date: 20191004
  Serious: Yes (Other)
  Sender: FDA-Public Use
  Company Number: FR-BEH-2019104332

PATIENT
  Age: 72 Year
  Sex: Male
  Weight: 82 kg

DRUGS (6)
  1. PRIVIGEN [Suspect]
     Active Substance: HUMAN IMMUNOGLOBULIN G
     Dosage: UNK UNK, QD
     Route: 041
     Dates: start: 20190528, end: 20190531
  2. PRIVIGEN [Suspect]
     Active Substance: HUMAN IMMUNOGLOBULIN G
     Dosage: UNK UNK, QD
     Route: 041
     Dates: start: 20190528, end: 20190531
  3. PRIVIGEN [Suspect]
     Active Substance: HUMAN IMMUNOGLOBULIN G
     Dosage: UNK UNK, QD
     Route: 041
     Dates: start: 20190528, end: 20190531
  4. METHYLPREDNISOLONE MERCK [Concomitant]
     Active Substance: METHYLPREDNISOLONE
  5. ATORVASTATINE ARROW [Concomitant]
     Active Substance: ATORVASTATIN
  6. PRIVIGEN [Suspect]
     Active Substance: HUMAN IMMUNOGLOBULIN G
     Indication: IMMUNE THROMBOCYTOPENIC PURPURA
     Dosage: 80 GRAM, QD
     Route: 041
     Dates: start: 20190528, end: 20190531

REACTIONS (6)
  - Chills [Recovered/Resolved]
  - Headache [Recovered/Resolved]
  - Back pain [Recovered/Resolved]
  - Klebsiella infection [Recovered/Resolved]
  - Thrombophlebitis superficial [Recovered/Resolved]
  - Pyrexia [Recovered/Resolved]

NARRATIVE: CASE EVENT DATE: 20190531
